FAERS Safety Report 6239755-2 (Version None)
Quarter: 2009Q2

REPORT INFORMATION
  Report Type: 
  Country: None (occurrence: None)
  Receive Date: 20090619
  Receipt Date: 20090610
  Transmission Date: 20091009
  Serious: Yes (Other)
  Sender: FDA-Public Use
  Company Number: CHNY2009BR02408

PATIENT
  Age: 58 Year
  Sex: Male

DRUGS (4)
  1. AGASTEN (NCH) (CLEMASTINE HYDROGEN FUMARATE) TABLET [Suspect]
     Indication: EYE SWELLING
     Dosage: 1 DF, Q12H
  2. AGASTEN (NCH) (CLEMASTINE HYDROGEN FUMARATE) TABLET [Suspect]
     Indication: GENERALISED ERYTHEMA
     Dosage: 1 DF, Q12H
  3. AGASTEN (NCH) (CLEMASTINE HYDROGEN FUMARATE) TABLET [Suspect]
     Indication: HYPERSENSITIVITY
     Dosage: 1 DF, Q12H
  4. AGASTEN (NCH) (CLEMASTINE HYDROGEN FUMARATE) TABLET [Suspect]
     Indication: PRURITUS
     Dosage: 1 DF, Q12H

REACTIONS (4)
  - BEDRIDDEN [None]
  - CONDITION AGGRAVATED [None]
  - DRUG INEFFECTIVE [None]
  - HYPERSENSITIVITY [None]
